FAERS Safety Report 23923351 (Version 1)
Quarter: 2024Q2

REPORT INFORMATION
  Report Type: Spontaneous
  Country: US (occurrence: US)
  Receive Date: 20240531
  Receipt Date: 20240531
  Transmission Date: 20240716
  Serious: Yes (Other)
  Sender: FDA-Public Use
  Company Number: US-STRIDES ARCOLAB LIMITED-2024SP003238

PATIENT
  Age: 60 Year
  Sex: Female

DRUGS (10)
  1. PROPRANOLOL [Suspect]
     Active Substance: PROPRANOLOL HYDROCHLORIDE
     Indication: Dyskinesia
     Dosage: UNK
     Route: 065
  2. PROPRANOLOL [Suspect]
     Active Substance: PROPRANOLOL HYDROCHLORIDE
     Indication: Withdrawal syndrome
  3. AMANTADINE [Suspect]
     Active Substance: AMANTADINE
     Indication: Dyskinesia
     Dosage: UNK
     Route: 065
  4. AMANTADINE [Suspect]
     Active Substance: AMANTADINE
     Indication: Withdrawal syndrome
  5. LAMOTRIGINE [Suspect]
     Active Substance: LAMOTRIGINE
     Indication: Dyskinesia
     Dosage: UNK
     Route: 065
  6. LAMOTRIGINE [Suspect]
     Active Substance: LAMOTRIGINE
     Indication: Withdrawal syndrome
  7. LURASIDONE [Concomitant]
     Active Substance: LURASIDONE
     Indication: Affective disorder
     Dosage: 60 MILLIGRAM
     Route: 065
  8. LURASIDONE [Concomitant]
     Active Substance: LURASIDONE
     Dosage: 30 MILLIGRAM, (DOSE REDUCED)
     Route: 065
  9. LURASIDONE [Concomitant]
     Active Substance: LURASIDONE
     Dosage: UNK, (DOSE INCREASED)
     Route: 065
  10. AMPHETAMINE [Concomitant]
     Active Substance: AMPHETAMINE
     Indication: Attention deficit hyperactivity disorder
     Dosage: UNK, (SALTS)
     Route: 065

REACTIONS (2)
  - Therapy non-responder [Unknown]
  - Off label use [Unknown]
